FAERS Safety Report 14258093 (Version 1)
Quarter: 2017Q4

REPORT INFORMATION
  Report Type: Report from Study
  Country: US (occurrence: US)
  Receive Date: 20171207
  Receipt Date: 20171207
  Transmission Date: 20180321
  Serious: Yes (Life-Threatening, Other)
  Sender: FDA-Public Use
  Company Number: US-ROCHE-1273043

PATIENT

DRUGS (2)
  1. RITUXIMAB. [Suspect]
     Active Substance: RITUXIMAB
     Indication: B-CELL LYMPHOMA
     Dosage: FIRST FOUR DOSES (INDUCTION THERAPY) WERE ADMINISTERED WEEKLY ON DAYS 1, 8, 15, AND 22, STARTING ON
     Route: 042
  2. LENALIDOMIDE [Suspect]
     Active Substance: LENALIDOMIDE
     Indication: B-CELL LYMPHOMA
     Dosage: ON DAYS 1-21FOLLWED BY 7 DAY REST, EVERY 28-DAY CYCLE FOR 12 CYCLES
     Route: 048

REACTIONS (23)
  - Pain [Unknown]
  - Lymphopenia [Unknown]
  - Aspartate aminotransferase increased [Unknown]
  - Neutropenia [Unknown]
  - Fatigue [Unknown]
  - Infection [Unknown]
  - Alanine aminotransferase increased [Unknown]
  - Hypocalcaemia [Unknown]
  - Headache [Unknown]
  - Leukopenia [Unknown]
  - Serum sickness [Unknown]
  - Constipation [Unknown]
  - Respiratory tract infection [Unknown]
  - Hyperglycaemia [Unknown]
  - Febrile neutropenia [Unknown]
  - Thrombocytopenia [Unknown]
  - Rash maculo-papular [Unknown]
  - Sinusitis [Unknown]
  - Blood bilirubin increased [Unknown]
  - Diarrhoea [Unknown]
  - Tumour lysis syndrome [Unknown]
  - Embolism [Unknown]
  - Peripheral sensory neuropathy [Unknown]
